FAERS Safety Report 4403021-8 (Version None)
Quarter: 2004Q3

REPORT INFORMATION
  Report Type: 
  Country: None (occurrence: None)
  Receive Date: 20040721
  Receipt Date: 20031111
  Transmission Date: 20050211
  Serious: No
  Sender: FDA-Public Use
  Company Number: US-GLAXOSMITHKLINE-A0439230A

PATIENT
  Age: 55 Year
  Sex: Female

DRUGS (2)
  1. IMITREX [Suspect]
     Indication: MIGRAINE
     Dosage: 50MG VARIABLE DOSE
     Route: 048
     Dates: start: 19950101, end: 19990101
  2. LEVOXYL [Concomitant]

REACTIONS (3)
  - DYSPNOEA [None]
  - FLUSHING [None]
  - PALPITATIONS [None]
